FAERS Safety Report 11156474 (Version 1)
Quarter: 2015Q2

REPORT INFORMATION
  Report Type: Spontaneous
  Country: US (occurrence: US)
  Receive Date: 20150602
  Receipt Date: 20150602
  Transmission Date: 20150821
  Serious: No
  Sender: FDA-Public Use
  Company Number: US-PFIZER INC-2015182903

PATIENT
  Age: 58 Year
  Sex: Male
  Weight: 97.96 kg

DRUGS (11)
  1. ALLOPURINOL. [Concomitant]
     Active Substance: ALLOPURINOL
     Dosage: 100 MG, DAILY (ONE TABLET)
  2. COENZYME Q10 [Concomitant]
     Active Substance: UBIDECARENONE
     Dosage: UNK
  3. BIOTIN [Concomitant]
     Active Substance: BIOTIN
     Dosage: UNK
  4. BUSPIRONE [Concomitant]
     Active Substance: BUSPIRONE HYDROCHLORIDE
     Dosage: 20 MG, DAILY (TWO TABLETS)
  5. CARVEDILOL. [Concomitant]
     Active Substance: CARVEDILOL
     Dosage: 50 MG, DAILY (TWO TABLETS)
  6. QUINAPRIL [Concomitant]
     Active Substance: QUINAPRIL\QUINAPRIL HYDROCHLORIDE
     Dosage: 20 MG, 2X/DAY
  7. PROBIOTICS [Concomitant]
     Active Substance: PROBIOTICS NOS
     Dosage: UNK
  8. VIAGRA [Suspect]
     Active Substance: SILDENAFIL CITRATE
     Indication: ERECTILE DYSFUNCTION
     Dosage: 50 MG, 1X/DAY
     Dates: start: 201505
  9. DIGITEK [Concomitant]
     Active Substance: DIGOXIN
     Dosage: (0.25 MG HALF A TABLET), 1X/DAY
  10. GLYBURIDE. [Concomitant]
     Active Substance: GLYBURIDE
     Dosage: (2.5 MG HALF A TABLET), 2X/DAY
  11. ZOLOFT [Concomitant]
     Active Substance: SERTRALINE HYDROCHLORIDE
     Dosage: 100 MG, 2X/DAY (ONE TAB)

REACTIONS (1)
  - Drug ineffective [Unknown]

NARRATIVE: CASE EVENT DATE: 201505
